FAERS Safety Report 21101173 (Version 2)
Quarter: 2022Q3

REPORT INFORMATION
  Report Type: Spontaneous
  Country: US (occurrence: US)
  Receive Date: 20220719
  Receipt Date: 20220720
  Transmission Date: 20221026
  Serious: No
  Sender: FDA-Public Use
  Company Number: US-PFIZER INC-202200973978

PATIENT
  Age: 60 Year
  Sex: Female
  Weight: 107.95 kg

DRUGS (2)
  1. PAXLOVID [Suspect]
     Active Substance: NIRMATRELVIR\RITONAVIR
     Indication: COVID-19 treatment
     Dosage: UNK
     Dates: start: 20220713, end: 20220718
  2. METFORMIN [Concomitant]
     Active Substance: METFORMIN HYDROCHLORIDE
     Dosage: UNK

REACTIONS (5)
  - Ageusia [Recovering/Resolving]
  - Hypoaesthesia [Recovering/Resolving]
  - Dysgeusia [Unknown]
  - Fatigue [Unknown]
  - Photophobia [Unknown]
